FAERS Safety Report 7017397-9 (Version None)
Quarter: 2010Q3

REPORT INFORMATION
  Report Type: 
  Country: None (occurrence: None)
  Receive Date: 20100928
  Receipt Date: 20100923
  Transmission Date: 20110219
  Serious: Yes (Other)
  Sender: FDA-Public Use
  Company Number: IE-BRISTOL-MYERS SQUIBB COMPANY-15005788

PATIENT
  Age: 24 Year
  Sex: Female
  Weight: 76 kg

DRUGS (3)
  1. ATAZANAVIR [Suspect]
     Indication: HIV INFECTION
     Dosage: STARTED PRIOR TO PREGNANCY.
     Route: 048
     Dates: end: 20090514
  2. NORVIR [Suspect]
     Indication: HIV INFECTION
     Dosage: STARTED PRIOR TO PREGNANCY.
     Route: 048
     Dates: end: 20090514
  3. TRIZIVIR [Suspect]
     Indication: HIV INFECTION
     Dosage: 1DF=1TABLET. STARTED PRIOR TO PREGNANCY.
     Route: 048

REACTIONS (3)
  - CAESAREAN SECTION [None]
  - NORMAL NEWBORN [None]
  - TWIN PREGNANCY [None]
